FAERS Safety Report 8016393-2 (Version None)
Quarter: 2011Q4

REPORT INFORMATION
  Report Type: 
  Country: None (occurrence: None)
  Receive Date: 20111230
  Receipt Date: 20111228
  Transmission Date: 20120403
  Serious: Yes (Hospitalization)
  Sender: FDA-Public Use
  Company Number: FR-ROCHE-1025900

PATIENT
  Sex: Male

DRUGS (6)
  1. CISPLATIN [Suspect]
     Indication: MANTLE CELL LYMPHOMA
     Route: 042
     Dates: start: 20111125
  2. DEXAMETHASONE [Suspect]
     Indication: MANTLE CELL LYMPHOMA
     Dosage: 80 MG DAY 1,40 MG DAY 2 AMD 4
     Route: 042
     Dates: start: 20111125, end: 20111128
  3. VALACYCLOVIR HYDROCHLORIDE [Concomitant]
     Route: 048
     Dates: start: 20110913
  4. MABTHERA [Suspect]
     Indication: MANTLE CELL LYMPHOMA
     Route: 042
     Dates: start: 20111125
  5. CYTARABINE [Suspect]
     Indication: MANTLE CELL LYMPHOMA
     Route: 042
     Dates: start: 20111125, end: 20111126
  6. NEXIUM [Concomitant]
     Route: 048
     Dates: start: 20111130

REACTIONS (1)
  - DEEP VEIN THROMBOSIS [None]
